FAERS Safety Report 25414212 (Version 1)
Quarter: 2025Q2

REPORT INFORMATION
  Report Type: Spontaneous
  Country: JP (occurrence: JP)
  Receive Date: 20250609
  Receipt Date: 20250609
  Transmission Date: 20250717
  Serious: Yes (Death, Other)
  Sender: JAZZ
  Company Number: JP-JAZZ PHARMACEUTICALS-2025-JP-014509

PATIENT
  Age: 79 Year
  Sex: Male

DRUGS (6)
  1. VYXEOS [Suspect]
     Active Substance: CYTARABINE\DAUNORUBICIN
     Indication: Acute myeloid leukaemia
     Route: 042
     Dates: start: 20240925, end: 2024
  2. VYXEOS [Suspect]
     Active Substance: CYTARABINE\DAUNORUBICIN
     Route: 042
     Dates: start: 2024, end: 20241124
  3. VIDAZA [Suspect]
     Active Substance: AZACITIDINE
     Indication: Acute myeloid leukaemia
     Route: 042
     Dates: start: 2024
  4. VENCLEXTA [Concomitant]
     Active Substance: VENETOCLAX
     Indication: Acute myeloid leukaemia
     Dates: start: 2024
  5. DAPTOMYCIN [Concomitant]
     Active Substance: DAPTOMYCIN
     Indication: Product used for unknown indication
     Dates: end: 2024
  6. NOXAFIL [Concomitant]
     Active Substance: POSACONAZOLE
     Indication: Product used for unknown indication
     Dates: end: 2024

REACTIONS (10)
  - Death [Fatal]
  - Cytopenia [Unknown]
  - Acute myeloid leukaemia recurrent [Unknown]
  - Enterococcal bacteraemia [Unknown]
  - Acute myeloid leukaemia recurrent [Unknown]
  - Enterocolitis [Unknown]
  - Cytarabine syndrome [Unknown]
  - Aspergillus test positive [Unknown]
  - Pyrexia [Unknown]
  - Pyrexia [Unknown]

NARRATIVE: CASE EVENT DATE: 20240101
